FAERS Safety Report 7343143-5 (Version None)
Quarter: 2011Q1

REPORT INFORMATION
  Report Type: 
  Country: None (occurrence: None)
  Receive Date: 20110301
  Receipt Date: 20110218
  Transmission Date: 20110831
  Serious: Yes (Hospitalization)
  Sender: FDA-Public Use
  Company Number: JP-2011-10120

PATIENT
  Age: 92 Year
  Sex: Female
  Weight: 42 kg

DRUGS (10)
  1. LACTEC (LACTATED RINGERS SOLUTION) [Concomitant]
  2. AMLODIPINE BESYLATE [Concomitant]
  3. LASIX [Concomitant]
  4. NITOROL (ISOSORBIDE DINITIRATE) [Concomitant]
  5. SAMSCA [Suspect]
     Indication: CARDIAC FAILURE
     Dosage: SEE IMAGE
     Route: 048
     Dates: start: 20110119, end: 20110119
  6. SAMSCA [Suspect]
     Indication: CARDIAC FAILURE
     Dosage: SEE IMAGE
     Route: 048
     Dates: start: 20110116, end: 20110116
  7. SAMSCA [Suspect]
     Indication: CARDIAC FAILURE
     Dosage: SEE IMAGE
     Route: 048
     Dates: start: 20110110, end: 20110114
  8. SAMSCA [Suspect]
     Indication: CARDIAC FAILURE
     Dosage: SEE IMAGE
     Route: 048
     Dates: start: 20110120, end: 20110126
  9. HANP (CARPERITIDE) INJECTION, 1000 1/4G MICROGRAM(S) [Suspect]
     Indication: CARDIAC FAILURE
     Dosage: 1000 1/4G MICROGRAM(S), BID, IV DRIP
     Route: 041
     Dates: start: 20110110, end: 20110113
  10. SOLDACTONE (POTASSIUM CANRENOATE) [Concomitant]

REACTIONS (5)
  - HYPERNATRAEMIA [None]
  - THIRST [None]
  - CARDIAC FAILURE [None]
  - RESTLESSNESS [None]
  - WHEEZING [None]
